FAERS Safety Report 10075447 (Version 1)
Quarter: 2014Q2

REPORT INFORMATION
  Report Type: Spontaneous
  Country: US (occurrence: US)
  Receive Date: 20140414
  Receipt Date: 20140414
  Transmission Date: 20141212
  Serious: No
  Sender: FDA-Public Use
  Company Number: US-DRREDDYS-USA/USA/14/0038959

PATIENT
  Age: 73 Year
  Sex: Male
  Weight: 59.93 kg

DRUGS (1)
  1. LEVOFLOXACIN TABLETS 750 MG [Suspect]
     Indication: ANTIBIOTIC PROPHYLAXIS
     Route: 048
     Dates: start: 20140127, end: 20140130

REACTIONS (2)
  - Myalgia [Recovering/Resolving]
  - Tendon pain [Recovering/Resolving]
